FAERS Safety Report 25167503 (Version 1)
Quarter: 2025Q2

REPORT INFORMATION
  Report Type: Spontaneous
  Country: US (occurrence: None)
  Receive Date: 20250406
  Receipt Date: 20250406
  Transmission Date: 20250717
  Serious: Yes (Other)
  Sender: FDA-CTU
  Company Number: None

PATIENT
  Age: 41 Year
  Sex: Female
  Weight: 82 kg

DRUGS (1)
  1. RIFAXIMIN [Suspect]
     Active Substance: RIFAXIMIN

REACTIONS (6)
  - Headache [None]
  - Nausea [None]
  - Dizziness [None]
  - Vertigo [None]
  - Eating disorder [None]
  - Mobility decreased [None]

NARRATIVE: CASE EVENT DATE: 20250401
